FAERS Safety Report 5827492-5 (Version None)
Quarter: 2008Q3

REPORT INFORMATION
  Report Type: 
  Country: None (occurrence: None)
  Receive Date: 20080725
  Receipt Date: 20080714
  Transmission Date: 20090109
  Serious: Yes (Hospitalization)
  Sender: FDA-Public Use
  Company Number: 2008BI012515

PATIENT
  Age: 62 Year
  Sex: Female

DRUGS (1)
  1. AVONEX [Suspect]
     Indication: MULTIPLE SCLEROSIS
     Dosage: 30 UG;QW;IM
     Route: 030
     Dates: start: 19970101

REACTIONS (11)
  - AGEUSIA [None]
  - AMNESIA [None]
  - ASPIRATION [None]
  - BRONCHITIS [None]
  - CONDITION AGGRAVATED [None]
  - DYSARTHRIA [None]
  - HEART RATE IRREGULAR [None]
  - LOSS OF CONSCIOUSNESS [None]
  - MULTIPLE SCLEROSIS [None]
  - PNEUMONITIS [None]
  - PSYCHOTIC BEHAVIOUR [None]
